FAERS Safety Report 5385912-7 (Version None)
Quarter: 2007Q3

REPORT INFORMATION
  Report Type: 
  Country: None (occurrence: None)
  Receive Date: 20070712
  Receipt Date: 20070702
  Transmission Date: 20080115
  Serious: Yes (Hospitalization)
  Sender: FDA-Public Use
  Company Number: FR-AMGEN-US233205

PATIENT
  Age: 53 Year
  Sex: Male

DRUGS (9)
  1. ENBREL [Suspect]
     Indication: DRUG USE FOR UNKNOWN INDICATION
     Dosage: UNKNOWN
     Route: 058
     Dates: start: 20030526, end: 20070115
  2. ZESTRIL [Concomitant]
     Dosage: UNKNOWN
     Route: 048
  3. PROGRAF [Concomitant]
     Dosage: UNKNOWN
  4. OMEPRAZOLE [Concomitant]
     Dosage: UNKNOWN
  5. CELLCEPT [Concomitant]
     Dosage: UNKNOWN
  6. LEDERFOLINE [Concomitant]
     Dosage: UNKNOWN
     Route: 048
  7. ATORVASTATIN CALCIUM [Concomitant]
     Dosage: UNKNOWN
     Route: 048
  8. CORTANCYL [Concomitant]
     Dosage: UNKNOWN
     Route: 048
  9. LOGIMAX [Concomitant]
     Dosage: UNKNOWN
     Route: 048

REACTIONS (6)
  - COLITIS EROSIVE [None]
  - COLITIS ISCHAEMIC [None]
  - COLITIS ULCERATIVE [None]
  - COLON ADENOMA [None]
  - CYTOMEGALOVIRUS VIRAEMIA [None]
  - ENTEROCOLITIS INFECTIOUS [None]
